FAERS Safety Report 18050921 (Version 1)
Quarter: 2020Q3

REPORT INFORMATION
  Report Type: Spontaneous
  Country: PL (occurrence: PL)
  Receive Date: 20200721
  Receipt Date: 20200721
  Transmission Date: 20201103
  Serious: Yes (Death, Other)
  Sender: FDA-Public Use
  Company Number: PL-BAYER-2020-140664

PATIENT
  Age: 56 Year
  Sex: Male
  Weight: 100 kg

DRUGS (1)
  1. ULTRAVIST [Suspect]
     Active Substance: IOPROMIDE
     Indication: COMPUTERISED TOMOGRAM
     Route: 041
     Dates: start: 20200424, end: 20200424

REACTIONS (16)
  - Acute myocardial infarction [Fatal]
  - Cardiogenic shock [Unknown]
  - Face oedema [Unknown]
  - Chest pain [Unknown]
  - Pallor [Unknown]
  - Erythema [Unknown]
  - Rash macular [Unknown]
  - Heart rate increased [Unknown]
  - Electrocardiogram ST segment elevation [Unknown]
  - Tachypnoea [Unknown]
  - Cold sweat [Unknown]
  - Cardiac arrest [Fatal]
  - Electrocardiogram ST segment depression [Unknown]
  - Blood pressure decreased [Unknown]
  - Oxygen saturation decreased [Unknown]
  - Cardiac failure [Fatal]

NARRATIVE: CASE EVENT DATE: 20200424
